FAERS Safety Report 12542064 (Version 3)
Quarter: 2020Q3

REPORT INFORMATION
  Report Type: Report from Study
  Country: TW (occurrence: TW)
  Receive Date: 20160708
  Receipt Date: 20160822
  Transmission Date: 20201104
  Serious: Yes (Hospitalization)
  Sender: FDA-Public Use
  Company Number: TW-PFIZER INC-2016330758

PATIENT
  Age: 47 Year
  Sex: Male

DRUGS (18)
  1. MORPHINE SULFATE. [Concomitant]
     Active Substance: MORPHINE SULFATE
     Dosage: 15 MG, EVERY 6 HOURS
     Route: 048
     Dates: start: 20160617, end: 20160619
  2. RANITIDINE. [Concomitant]
     Active Substance: RANITIDINE
     Indication: ABDOMINAL PAIN UPPER
     Dosage: 150 MG QD AND HS
     Route: 048
     Dates: start: 20160513
  3. METOCLOPRAMIDE. [Concomitant]
     Active Substance: METOCLOPRAMIDE
     Indication: NAUSEA
     Dosage: 5 MG, 3X/DAY
     Route: 048
     Dates: start: 20160608, end: 20160629
  4. ULTRACET [Concomitant]
     Active Substance: ACETAMINOPHEN\TRAMADOL HYDROCHLORIDE
     Indication: TUMOUR PAIN
     Dosage: 1 TABLET Q6H
     Route: 048
     Dates: start: 20160608, end: 20160617
  5. ZOLEDRONIC ACID [Concomitant]
     Active Substance: ZOLEDRONIC ACID
     Dosage: 4 MG, STAT
     Route: 042
     Dates: start: 20160702, end: 20160703
  6. SENNOSIDE [Concomitant]
     Active Substance: SENNOSIDES
     Dosage: 40 MG, 1X/DAY
     Route: 048
     Dates: start: 20160622
  7. LACTULOSE. [Concomitant]
     Active Substance: LACTULOSE
     Indication: CONSTIPATION
     Dosage: 15 ML, 4X/DAY
     Route: 048
     Dates: start: 20160617
  8. MEGESTROL [Concomitant]
     Active Substance: MEGESTROL
     Indication: DECREASED APPETITE
     Dosage: 5 ML, 2X/DAY
     Route: 048
     Dates: start: 20160608, end: 20160629
  9. SENNOSIDE [Concomitant]
     Active Substance: SENNOSIDES
     Indication: CONSTIPATION
     Dosage: 15 MG, 1X/DAY
     Route: 048
     Dates: start: 20160601, end: 20160608
  10. ULTRACET [Concomitant]
     Active Substance: ACETAMINOPHEN\TRAMADOL HYDROCHLORIDE
     Dosage: 1 TABLET Q6H
     Route: 048
     Dates: start: 20160622, end: 20160713
  11. MEDI4736 [Suspect]
     Active Substance: DURVALUMAB
     Indication: SQUAMOUS CELL CARCINOMA OF HEAD AND NECK
     Dosage: 1500.0MG ONCE/SINGLE ADMINISTRATION
     Route: 042
     Dates: start: 20160602, end: 20160602
  12. MORPHINE SULFATE. [Concomitant]
     Active Substance: MORPHINE SULFATE
     Indication: TUMOUR PAIN
     Dosage: 15 MG, EVERY 6 HOURS
     Route: 048
     Dates: start: 20160518, end: 20160608
  13. BISACODYL. [Concomitant]
     Active Substance: BISACODYL
     Dosage: 5 MG, 1X/DAY
     Route: 048
     Dates: start: 20160622, end: 20160622
  14. TREMELIMUMAB. [Suspect]
     Active Substance: TREMELIMUMAB
     Indication: SQUAMOUS CELL CARCINOMA OF HEAD AND NECK
     Dosage: 75.0MG ONCE/SINGLE ADMINISTRATION
     Route: 042
     Dates: start: 20160602, end: 20160602
  15. BISACODYL. [Concomitant]
     Active Substance: BISACODYL
     Indication: CONSTIPATION
     Dosage: 10 MG, 1X/DAY
     Route: 048
     Dates: start: 20160608, end: 20160629
  16. PROPRANOLOL HCL [Concomitant]
     Active Substance: PROPRANOLOL HYDROCHLORIDE
     Indication: HYPERTENSION
     Dosage: 10 MG, 2X/DAY
     Route: 048
     Dates: start: 20160601, end: 20160622
  17. ZOLEDRONIC ACID [Concomitant]
     Active Substance: ZOLEDRONIC ACID
     Indication: HYPERCALCAEMIA
     Dosage: 2 MG, 1X/DAY
     Route: 042
     Dates: start: 20160601, end: 20160601
  18. MAGNESIUM OXIDE. [Concomitant]
     Active Substance: MAGNESIUM OXIDE
     Indication: CONSTIPATION
     Dosage: 250 MG, 4X/DAY
     Route: 048
     Dates: start: 20160608, end: 20160629

REACTIONS (3)
  - Hyponatraemia [Recovered/Resolved]
  - Tumour pain [Not Recovered/Not Resolved]
  - Infection [Recovered/Resolved]

NARRATIVE: CASE EVENT DATE: 20160622
